FAERS Safety Report 6762599-X (Version None)
Quarter: 2010Q2

REPORT INFORMATION
  Report Type: 
  Country: None (occurrence: None)
  Receive Date: 20100609
  Receipt Date: 20100602
  Transmission Date: 20101027
  Serious: Yes (Other)
  Sender: FDA-Public Use
  Company Number: FI-ABBOTT-09P-055-0614738-00

PATIENT
  Age: 40 Year
  Sex: Male

DRUGS (1)
  1. HUMIRA [Suspect]
     Indication: PSORIASIS
     Dates: start: 20080201, end: 20090101

REACTIONS (3)
  - ALVEOLITIS ALLERGIC [None]
  - SARCOIDOSIS [None]
  - TUBERCULOSIS [None]
